FAERS Safety Report 9238879 (Version 1)
Quarter: 2013Q2

REPORT INFORMATION
  Report Type: Spontaneous
  Country: US (occurrence: None)
  Receive Date: 20130417
  Receipt Date: 20130417
  Transmission Date: 20140414
  Serious: No
  Sender: FDA-Public Use
  Company Number: None

PATIENT
  Age: 49 Year
  Sex: Male
  Weight: 112 kg

DRUGS (7)
  1. DAUNORUBICIN [Suspect]
  2. ALBUTEROL SULFATE [Concomitant]
  3. FLUTICASONE [Concomitant]
  4. FUROSEMIDE [Concomitant]
  5. LISINOPRIL [Concomitant]
  6. METOPROLOL SUCCINATE [Concomitant]
  7. MULTIVITAMIN [Concomitant]

REACTIONS (2)
  - Dyspnoea exertional [None]
  - Tachycardia [None]
